FAERS Safety Report 17041946 (Version 6)
Quarter: 2020Q4

REPORT INFORMATION
  Report Type: Report from Study
  Country: CA (occurrence: CA)
  Receive Date: 20191118
  Receipt Date: 20201101
  Transmission Date: 20210113
  Serious: Yes (Hospitalization, Other)
  Sender: FDA-Public Use
  Company Number: PHHY2018CA093397

PATIENT
  Age: 72 Year
  Sex: Female

DRUGS (10)
  1. COSENTYX [Suspect]
     Active Substance: SECUKINUMAB
     Indication: ANKYLOSING SPONDYLITIS
     Dosage: 150 MG, QW
     Route: 058
     Dates: start: 20180814
  2. COSENTYX [Suspect]
     Active Substance: SECUKINUMAB
     Dosage: 150 MG, QMO
     Route: 058
     Dates: start: 20190318
  3. COSENTYX [Suspect]
     Active Substance: SECUKINUMAB
     Dosage: 150 MG, QMO
     Route: 058
     Dates: start: 20190518
  4. ACITRETIN. [Concomitant]
     Active Substance: ACITRETIN
     Indication: PRODUCT USED FOR UNKNOWN INDICATION
     Dosage: UNK
     Route: 065
  5. COSENTYX [Suspect]
     Active Substance: SECUKINUMAB
     Dosage: 150 MG, QMO
     Route: 058
     Dates: start: 20180911
  6. COSENTYX [Suspect]
     Active Substance: SECUKINUMAB
     Dosage: 150 MG, QMO
     Route: 058
     Dates: start: 201810
  7. COSENTYX [Suspect]
     Active Substance: SECUKINUMAB
     Dosage: 150 MG, QMO
     Route: 058
     Dates: start: 20191219
  8. METHOTREXATE. [Concomitant]
     Active Substance: METHOTREXATE
     Indication: PRODUCT USED FOR UNKNOWN INDICATION
     Dosage: UNK
     Route: 065
  9. COSENTYX [Suspect]
     Active Substance: SECUKINUMAB
     Dosage: 150 MG, QMO
     Route: 058
     Dates: start: 20190118
  10. CELEBREX [Concomitant]
     Active Substance: CELECOXIB
     Indication: PRODUCT USED FOR UNKNOWN INDICATION
     Dosage: 100 OT, BID
     Route: 065
     Dates: start: 201803

REACTIONS (20)
  - Gait disturbance [Unknown]
  - Herpes zoster [Unknown]
  - Psoriasis [Unknown]
  - Fall [Unknown]
  - Arthralgia [Unknown]
  - General physical health deterioration [Unknown]
  - Neoplasm malignant [Unknown]
  - Memory impairment [Unknown]
  - Dysstasia [Unknown]
  - Dry skin [Unknown]
  - Macule [Not Recovered/Not Resolved]
  - Musculoskeletal stiffness [Unknown]
  - Back disorder [Unknown]
  - Erythema [Unknown]
  - Back pain [Unknown]
  - Pruritus [Unknown]
  - Therapeutic product effect incomplete [Unknown]
  - Wound [Recovered/Resolved]
  - Fatigue [Unknown]
  - Neck pain [Unknown]

NARRATIVE: CASE EVENT DATE: 201809
